FAERS Safety Report 16107853 (Version 2)
Quarter: 2019Q3

REPORT INFORMATION
  Report Type: Spontaneous
  Country: US (occurrence: US)
  Receive Date: 20190322
  Receipt Date: 20190711
  Transmission Date: 20191004
  Serious: Yes (Death, Hospitalization)
  Sender: FDA-Public Use
  Company Number: US-PFIZER INC-2019126715

PATIENT
  Age: 74 Year
  Sex: Male

DRUGS (2)
  1. XALKORI [Suspect]
     Active Substance: CRIZOTINIB
     Indication: BRAIN NEOPLASM
     Dosage: 10 MG, UNK (2 DAY)
  2. XALKORI [Suspect]
     Active Substance: CRIZOTINIB
     Indication: LUNG NEOPLASM MALIGNANT
     Dosage: 250 MG, UNK

REACTIONS (5)
  - Dry mouth [Unknown]
  - Mouth haemorrhage [Unknown]
  - Tongue haemorrhage [Unknown]
  - Death [Fatal]
  - Feeding disorder [Unknown]

NARRATIVE: CASE EVENT DATE: 20190316
